FAERS Safety Report 17571296 (Version 1)
Quarter: 2020Q1

REPORT INFORMATION
  Report Type: Spontaneous
  Country: US (occurrence: US)
  Receive Date: 20200323
  Receipt Date: 20200323
  Transmission Date: 20200409
  Serious: Yes (Other)
  Sender: FDA-Public Use
  Company Number: US-PFIZER INC-2020121435

PATIENT
  Sex: Female

DRUGS (1)
  1. ALPRAZOLAM. [Suspect]
     Active Substance: ALPRAZOLAM
     Indication: VERTIGO
     Dosage: UNK

REACTIONS (3)
  - Anaphylactic shock [Unknown]
  - Product use in unapproved indication [Unknown]
  - Off label use [Unknown]
